FAERS Safety Report 15208575 (Version 3)
Quarter: 2019Q3

REPORT INFORMATION
  Report Type: Spontaneous
  Country: AT (occurrence: AT)
  Receive Date: 20180727
  Receipt Date: 20190917
  Transmission Date: 20191004
  Serious: Yes (Hospitalization, Other)
  Sender: FDA-Public Use
  Company Number: AT-009507513-1806AUT002409

PATIENT
  Age: 59 Year
  Sex: Male

DRUGS (7)
  1. EZETIMIBE. [Suspect]
     Active Substance: EZETIMIBE
     Indication: CORONARY ARTERY DISEASE
     Dosage: 1 DF, DAILY 0-0-0-1
     Route: 065
     Dates: end: 20180513
  2. ATORVASTATIN CALCIUM. [Suspect]
     Active Substance: ATORVASTATIN CALCIUM
     Indication: CORONARY ARTERY DISEASE
     Dosage: 1 DOSAGE FORM, QD, 0-0-0-1
     Route: 065
     Dates: end: 20180513
  3. THROMBO ASS [Concomitant]
     Active Substance: ASPIRIN
     Indication: PRODUCT USED FOR UNKNOWN INDICATION
     Dosage: 1 DOSAGE FORM, QD
     Route: 065
  4. XYZALL [Suspect]
     Active Substance: LEVOCETIRIZINE DIHYDROCHLORIDE
     Indication: HYPERSENSITIVITY
     Dosage: 1 DOSAGE FORM, QD, 1-0-0-0
     Route: 065
     Dates: start: 20180502, end: 20180504
  5. CANDESARTAN CILEXETIL (+) HYDROCHLOROTHIAZIDE [Concomitant]
     Active Substance: CANDESARTAN CILEXETIL\HYDROCHLOROTHIAZIDE
     Indication: PRODUCT USED FOR UNKNOWN INDICATION
     Dosage: 1 DF, DAILY
     Route: 065
  6. ATOZET 10 MG/80 MG FILMTABLETTEN [Suspect]
     Active Substance: ATORVASTATIN CALCIUM\EZETIMIBE
     Indication: CORONARY ARTERY DISEASE
     Dosage: 1 DOSAGE FORM, QD 0-0-0-1
     Route: 065
     Dates: end: 20180513
  7. PREDNISOLONE. [Concomitant]
     Active Substance: PREDNISOLONE
     Indication: HYPERSENSITIVITY
     Dosage: UNK
     Route: 065
     Dates: start: 20180502, end: 20180504

REACTIONS (1)
  - Acute hepatic failure [Recovering/Resolving]

NARRATIVE: CASE EVENT DATE: 20180512
